FAERS Safety Report 9285056 (Version 1)
Quarter: 2013Q2

REPORT INFORMATION
  Report Type: Report from Study
  Country: CA (occurrence: CA)
  Receive Date: 20130513
  Receipt Date: 20130513
  Transmission Date: 20140414
  Serious: Yes (Other)
  Sender: FDA-Public Use
  Company Number: CA-JNJFOC-20130506014

PATIENT
  Age: 33 Year
  Sex: Male
  Weight: 92.9 kg

DRUGS (6)
  1. REMICADE [Suspect]
     Indication: CROHN^S DISEASE
     Dosage: 17TH INFUSION
     Route: 042
     Dates: start: 20130426
  2. REMICADE [Suspect]
     Indication: CROHN^S DISEASE
     Route: 042
     Dates: start: 20101109
  3. DICLOFENAC [Concomitant]
     Route: 065
  4. HYDROCORTISONE [Concomitant]
     Route: 065
  5. PREDNISONE [Concomitant]
     Dosage: PRN
     Route: 065
  6. OXYCONTIN [Concomitant]
     Dosage: PRN
     Route: 065

REACTIONS (6)
  - Loss of consciousness [Recovered/Resolved]
  - Diarrhoea [Recovered/Resolved]
  - Vomiting [Recovered/Resolved]
  - Head discomfort [Recovered/Resolved]
  - Feeling hot [Recovered/Resolved]
  - Muscle spasms [Recovered/Resolved]
